FAERS Safety Report 4779354-2 (Version None)
Quarter: 2005Q3

REPORT INFORMATION
  Report Type: 
  Country: None (occurrence: None)
  Receive Date: 20050914
  Receipt Date: 20050630
  Transmission Date: 20060218
  Serious: Yes (Other)
  Sender: FDA-Public Use
  Company Number: 409571

PATIENT
  Age: 47 Year
  Sex: Female
  Weight: 56.7 kg

DRUGS (3)
  1. BONIVA [Suspect]
     Indication: OSTEOPOROSIS PROPHYLAXIS
     Dosage: 150 MG 1 PER MONTH ORAL
     Route: 048
     Dates: start: 20050601
  2. SYNTHROID [Concomitant]
  3. ZITHROMAX [Concomitant]

REACTIONS (1)
  - ADENOVIRUS INFECTION [None]
